FAERS Safety Report 21835656 (Version 2)
Quarter: 2023Q4

REPORT INFORMATION
  Report Type: Spontaneous
  Country: US (occurrence: US)
  Receive Date: 20230109
  Receipt Date: 20231116
  Transmission Date: 20240110
  Serious: No
  Sender: FDA-Public Use
  Company Number: US-SANOFI-01427833

PATIENT
  Age: 59 Year
  Sex: Female

DRUGS (16)
  1. DUPIXENT [Suspect]
     Active Substance: DUPILUMAB
     Indication: Dermatitis atopic
     Dosage: 300 MG, QOW
     Route: 058
     Dates: start: 20211110
  2. TRIAMCINOLONE DIACETATE [Concomitant]
     Active Substance: TRIAMCINOLONE DIACETATE
  3. ZYRTEC [Concomitant]
     Active Substance: CETIRIZINE HYDROCHLORIDE
  4. VITAMIN D3 [Concomitant]
     Active Substance: CHOLECALCIFEROL
  5. VITAMIN D NOS [Concomitant]
     Active Substance: VITAMIN D NOS
  6. TIROSINT [Concomitant]
     Active Substance: LEVOTHYROXINE SODIUM
  7. LOSARTAN POTASSIUM [Concomitant]
     Active Substance: LOSARTAN POTASSIUM
  8. HYDROXYZINE HYDROCHLORIDE [Concomitant]
     Active Substance: HYDROXYZINE HYDROCHLORIDE
  9. HYDROCHLOROTHIAZIDE [Concomitant]
     Active Substance: HYDROCHLOROTHIAZIDE
  10. FAMOTIDINE [Concomitant]
     Active Substance: FAMOTIDINE
  11. DIPHENHYDRAMINE HYDROCHLORIDE [Concomitant]
     Active Substance: DIPHENHYDRAMINE HYDROCHLORIDE
  12. CITALOPRAM [Concomitant]
     Active Substance: CITALOPRAM HYDROBROMIDE
  13. CALCIUM CITRATE [Concomitant]
     Active Substance: CALCIUM CITRATE
  14. AMLODIPINE BESYLATE [Concomitant]
     Active Substance: AMLODIPINE BESYLATE
  15. AMITRIPTYLINE HYDROCHLORIDE [Concomitant]
     Active Substance: AMITRIPTYLINE HYDROCHLORIDE
  16. MAGNESIUM [Concomitant]
     Active Substance: MAGNESIUM

REACTIONS (11)
  - Muscle contractions involuntary [Unknown]
  - Muscle spasms [Unknown]
  - Feeling hot [Unknown]
  - Gait disturbance [Unknown]
  - Dry skin [Not Recovered/Not Resolved]
  - Skin haemorrhage [Recovered/Resolved]
  - Skin fissures [Recovered/Resolved]
  - Myalgia [Unknown]
  - Vision blurred [Not Recovered/Not Resolved]
  - Dry eye [Recovered/Resolved]
  - Dry eye [Not Recovered/Not Resolved]

NARRATIVE: CASE EVENT DATE: 20221124
